FAERS Safety Report 6065287-0 (Version None)
Quarter: 2009Q1

REPORT INFORMATION
  Report Type: 
  Country: None (occurrence: None)
  Receive Date: 20090130
  Receipt Date: 20090115
  Transmission Date: 20090719
  Serious: Yes (Other)
  Sender: FDA-Public Use
  Company Number: 2009S1000899

PATIENT
  Age: 50 Year
  Sex: Female

DRUGS (2)
  1. AZATHIOPRINE [Suspect]
     Indication: AUTOIMMUNE HEPATITIS
  2. CORTICOSTEROIDS (CORTIOSTEROIDS) [Suspect]
     Indication: AUTOIMMUNE HEPATITIS

REACTIONS (2)
  - COELIAC DISEASE [None]
  - COLITIS [None]
